FAERS Safety Report 7547338-7 (Version None)
Quarter: 2011Q2

REPORT INFORMATION
  Report Type: 
  Country: None (occurrence: None)
  Receive Date: 20110614
  Receipt Date: 20110531
  Transmission Date: 20111010
  Serious: Yes (Hospitalization)
  Sender: FDA-Public Use
  Company Number: US-VERTEX PHARMACEUTICALS INC.-AE-2011-000253

PATIENT
  Sex: Female
  Weight: 66.738 kg

DRUGS (11)
  1. PEGASYS [Suspect]
     Indication: HEPATITIS C
     Route: 058
     Dates: start: 20110412
  2. CETIRIZINE HCL [Concomitant]
     Route: 048
     Dates: start: 20110427
  3. ZINC BASED CREAM [Concomitant]
     Indication: RASH
     Route: 061
     Dates: start: 20110415
  4. ESTRADIOL [Concomitant]
     Indication: VULVOVAGINAL DRYNESS
     Route: 061
  5. TYLENOL-500 [Concomitant]
     Route: 048
  6. FLUOCINONIDE [Concomitant]
     Indication: RASH
     Route: 061
     Dates: start: 20110415
  7. VX-950 [Suspect]
     Indication: HEPATITIS C
     Route: 048
     Dates: start: 20110412
  8. CETIRIZINE HCL [Concomitant]
     Indication: SEASONAL ALLERGY
     Route: 048
  9. ADVIL LIQUI-GELS [Concomitant]
     Indication: SINUS DISORDER
     Route: 048
     Dates: start: 20110427
  10. RIBAVIRIN [Suspect]
     Indication: HEPATITIS C
     Dosage: 600 MG AM, 400 MG PM
     Route: 048
     Dates: start: 20110412
  11. ADVIL LIQUI-GELS [Concomitant]
     Indication: NASOPHARYNGITIS
     Route: 048
     Dates: end: 20110427

REACTIONS (2)
  - ACUTE SINUSITIS [None]
  - DEHYDRATION [None]
